FAERS Safety Report 7890039-6 (Version None)
Quarter: 2011Q4

REPORT INFORMATION
  Report Type: 
  Country: None (occurrence: None)
  Receive Date: 20111103
  Receipt Date: 20111026
  Transmission Date: 20120403
  Serious: Yes (Hospitalization)
  Sender: FDA-Public Use
  Company Number: US-BAXTER-2011BH030599

PATIENT
  Age: 43 Year
  Sex: Female
  Weight: 41 kg

DRUGS (14)
  1. AMINO ACIDS NOS [Suspect]
     Indication: PARENTERAL NUTRITION
     Route: 042
     Dates: start: 20110810, end: 20110101
  2. ATENOLOL [Concomitant]
     Indication: PRODUCT USED FOR UNKNOWN INDICATION
     Route: 048
  3. INSULIN [Concomitant]
     Indication: DIABETES MELLITUS
     Route: 065
  4. DIOVAN HCT [Concomitant]
     Indication: PRODUCT USED FOR UNKNOWN INDICATION
     Route: 048
  5. AMINO ACIDS NOS [Suspect]
     Route: 042
     Dates: start: 20110810, end: 20110101
  6. EPOGEN [Concomitant]
     Indication: ANAEMIA
     Route: 042
  7. DEXTROSE [Suspect]
     Indication: PARENTERAL NUTRITION
     Route: 042
     Dates: start: 20110810, end: 20110101
  8. AMINO ACIDS NOS [Suspect]
     Route: 042
     Dates: start: 20110810, end: 20110101
  9. AMINO ACIDS NOS [Suspect]
     Route: 042
     Dates: start: 20110810, end: 20110101
  10. CLONIDINE [Concomitant]
     Indication: PRODUCT USED FOR UNKNOWN INDICATION
     Route: 048
  11. AMINO ACIDS NOS [Suspect]
     Route: 042
     Dates: start: 20110810, end: 20110101
  12. AMINO ACIDS NOS [Suspect]
     Route: 042
     Dates: start: 20110810, end: 20110101
  13. AMLODIPINE [Concomitant]
     Indication: BLOOD PRESSURE
     Route: 048
  14. ZEMPLAR [Suspect]
     Indication: HYPERTHYROIDISM
     Route: 042

REACTIONS (5)
  - PRURITUS [None]
  - BURNING SENSATION [None]
  - BLISTER [None]
  - RASH [None]
  - SKIN EXFOLIATION [None]
